FAERS Safety Report 11884939 (Version 1)
Quarter: 2016Q1

REPORT INFORMATION
  Report Type: Report from Study
  Country: US (occurrence: US)
  Receive Date: 20160104
  Receipt Date: 20160104
  Transmission Date: 20160526
  Serious: Yes (Death)
  Sender: FDA-Public Use
  Company Number: US-ASTRAZENECA-2015SF03318

PATIENT
  Age: 3091 Week
  Sex: Male

DRUGS (1)
  1. IRESSA [Suspect]
     Active Substance: GEFITINIB
     Indication: ILL-DEFINED DISORDER
     Route: 048
     Dates: start: 20150912

REACTIONS (1)
  - Death [Fatal]
